FAERS Safety Report 5199958-5 (Version None)
Quarter: 2007Q1

REPORT INFORMATION
  Report Type: 
  Country: None (occurrence: None)
  Receive Date: 20070103
  Receipt Date: 20061218
  Transmission Date: 20070707
  Serious: Yes (Hospitalization)
  Sender: FDA-Public Use
  Company Number: 2006BI014239

PATIENT
  Age: 44 Year
  Sex: Female
  Weight: 56.6996 kg

DRUGS (14)
  1. NATALIZUMAB [Suspect]
     Indication: MULTIPLE SCLEROSIS
     Dosage: 300 MG;QM;IV
     Route: 042
     Dates: start: 20061004, end: 20061004
  2. GABAPENTIN [Concomitant]
  3. ACTONEL [Concomitant]
  4. THYROID TAB [Concomitant]
  5. LEVOXYL [Concomitant]
  6. BACLOFEN [Concomitant]
  7. CLONAGIN [Concomitant]
  8. ALBUTEROL [Concomitant]
  9. VALTREX [Concomitant]
  10. ASCORBIC ACID [Concomitant]
  11. VITAMIN E [Concomitant]
  12. ZINC [Concomitant]
  13. MAGNESIUM [Concomitant]
  14. VITAMIN B COMPLEX CAP [Concomitant]

REACTIONS (9)
  - ANAPHYLACTIC SHOCK [None]
  - ANGER [None]
  - ANXIETY [None]
  - ASTHMA [None]
  - CONDITION AGGRAVATED [None]
  - HOSTILITY [None]
  - INFUSION RELATED REACTION [None]
  - PSYCHOTIC DISORDER [None]
  - PULMONARY OEDEMA [None]
